FAERS Safety Report 7391455-1 (Version None)
Quarter: 2011Q2

REPORT INFORMATION
  Report Type: 
  Country: None (occurrence: None)
  Receive Date: 20110404
  Receipt Date: 20101026
  Transmission Date: 20111010
  Serious: Yes (Hospitalization, Other)
  Sender: FDA-Public Use
  Company Number: US-BAYER-201024703NA

PATIENT
  Sex: Female
  Weight: 98 kg

DRUGS (15)
  1. PREDNISONE [Concomitant]
     Dosage: UNK
     Dates: start: 20080104
  2. PHENDIMETRAZINE FUMARATE [Concomitant]
     Dosage: UNK
     Dates: start: 20080104
  3. DOCUSATE SODIUM [Concomitant]
     Dosage: UNK
     Dates: start: 20080105
  4. B-COMPLEX [VITAMIN B NOS] [Concomitant]
     Dosage: UNK
     Dates: start: 20070206
  5. YASMIN [Suspect]
     Indication: PRODUCT USED FOR UNKNOWN INDICATION
     Dosage: UNK
     Route: 048
     Dates: start: 20021201, end: 20110101
  6. ALBUTEROL [Concomitant]
     Dosage: UNK
     Dates: start: 20080104
  7. UNCODEABLE ^UNCLASSIFIABLE^ [Concomitant]
  8. FAMOTIDINE [Concomitant]
     Dosage: UNK
     Dates: start: 20080105
  9. UNCODEABLE ^UNCLASSIFIABLE^ [Concomitant]
     Dosage: UNK
     Dates: start: 20070206
  10. POTASSIUM CHLORIDE [Concomitant]
     Dosage: UNK
     Dates: start: 20080104
  11. MULTI-VITAMIN [Concomitant]
     Dosage: UNK
     Dates: start: 20070206
  12. COUMADIN [Concomitant]
     Dosage: UNK
     Dates: start: 20080104
  13. HYDROCHLOROTHIAZIDE [Concomitant]
     Dosage: UNK
     Dates: start: 20080104
  14. YAZ [Suspect]
     Indication: PRODUCT USED FOR UNKNOWN INDICATION
     Dosage: UNK
     Route: 048
     Dates: start: 20021201, end: 20080101
  15. OCELLA [Suspect]
     Indication: PRODUCT USED FOR UNKNOWN INDICATION
     Dosage: UNK
     Route: 048
     Dates: start: 20021201, end: 20080101

REACTIONS (4)
  - PULMONARY EMBOLISM [None]
  - GALLBLADDER INJURY [None]
  - CHOLECYSTITIS CHRONIC [None]
  - DEEP VEIN THROMBOSIS [None]
